FAERS Safety Report 6644811-0 (Version None)
Quarter: 2010Q1

REPORT INFORMATION
  Report Type: 
  Country: None (occurrence: None)
  Receive Date: 20100322
  Receipt Date: 20100318
  Transmission Date: 20100710
  Serious: Yes (Hospitalization)
  Sender: FDA-Public Use
  Company Number: DE-SANOFI-AVENTIS-F04200900070

PATIENT
  Age: 70 Year
  Sex: Male

DRUGS (4)
  1. OXALIPLATIN [Suspect]
     Route: 041
     Dates: start: 20090612, end: 20090612
  2. DOCETAXEL [Suspect]
     Route: 041
     Dates: start: 20090612, end: 20090612
  3. FLUOROURACIL [Suspect]
     Route: 041
     Dates: start: 20090612, end: 20090612
  4. FOLINIC ACID [Suspect]
     Route: 041
     Dates: start: 20090612, end: 20090612

REACTIONS (4)
  - DYSPHAGIA [None]
  - FEBRILE INFECTION [None]
  - GENERAL PHYSICAL HEALTH DETERIORATION [None]
  - PLEURAL EFFUSION [None]
